FAERS Safety Report 6464973-8 (Version None)
Quarter: 2009Q4

REPORT INFORMATION
  Report Type: 
  Country: None (occurrence: None)
  Receive Date: 20091124
  Receipt Date: 20091116
  Transmission Date: 20100525
  Serious: Yes (Other)
  Sender: FDA-Public Use
  Company Number: 430049M06USA

PATIENT
  Age: 54 Year
  Sex: Female
  Weight: 62 kg

DRUGS (20)
  1. NOVANTRONE [Suspect]
     Indication: MULTIPLE SCLEROSIS
     Dosage: 4 IN 1 YEARS,
     Dates: start: 20050501, end: 20060501
  2. REBIF [Suspect]
     Indication: MULTIPLE SCLEROSIS
     Dosage: 44 MCG, 3 IN 1 WEEKS,; 22 MCG, 3 IN 1 WEEKS,
     Dates: start: 20011203
  3. NEURONTIN [Concomitant]
  4. DIOVAN [Concomitant]
  5. LEVOTHROID [Concomitant]
  6. LIPITOR [Concomitant]
  7. LEXAPRO [Concomitant]
  8. ALEVE [Concomitant]
  9. KLONOPIN [Concomitant]
  10. ZOCOR [Concomitant]
  11. BONIVA [Concomitant]
  12. PROTONIX [Concomitant]
  13. ASPIRIN [Concomitant]
  14. VAGISM (ALL OTHER THERAPEUTIC PRODUCTS) [Concomitant]
  15. BETAMATHOSONE DIPROPIONATE (BETAMETHASONE DIPROPIONATE) [Concomitant]
  16. LORTAB (VICODIN) [Concomitant]
  17. FIORINAL WITH CODEINE (FIORINAL-C 1/4 /00141301/) [Concomitant]
  18. SILVERX (ALL OTHER THERAPEUTIC PRODUCTS) [Concomitant]
  19. AMBIEN [Concomitant]
  20. LYRICA [Concomitant]

REACTIONS (12)
  - ABDOMINAL DISTENSION [None]
  - ATRIOVENTRICULAR BLOCK SECOND DEGREE [None]
  - CARDIAC FAILURE CONGESTIVE [None]
  - CARDIAC VENTRICULAR DISORDER [None]
  - HYPOTENSION [None]
  - JOINT SWELLING [None]
  - MUSCLE SPASMS [None]
  - MYOCARDIAL OEDEMA [None]
  - PERICARDIAL EFFUSION [None]
  - PERICARDITIS [None]
  - PULMONARY ARTERIAL WEDGE PRESSURE DECREASED [None]
  - SCAR [None]
